FAERS Safety Report 10920728 (Version 1)
Quarter: 2015Q1

REPORT INFORMATION
  Report Type: Spontaneous
  Country: FR (occurrence: FR)
  Receive Date: 20150317
  Receipt Date: 20150317
  Transmission Date: 20150721
  Serious: Yes (Hospitalization)
  Sender: FDA-Public Use
  Company Number: FR-JNJFOC-20150303195

PATIENT
  Age: 8 Year
  Sex: Female
  Weight: 22 kg

DRUGS (9)
  1. IFOSFAMIDE. [Suspect]
     Active Substance: IFOSFAMIDE
     Indication: EWING^S SARCOMA
     Route: 042
     Dates: start: 20141124, end: 20141126
  2. BIONOLYTE [Concomitant]
     Active Substance: UNSPECIFIED INGREDIENT
     Indication: EWING^S SARCOMA
     Route: 065
     Dates: start: 20141124, end: 20141126
  3. CAELYX [Suspect]
     Active Substance: DOXORUBICIN HYDROCHLORIDE
     Indication: EWING^S SARCOMA
     Route: 042
     Dates: start: 20141124, end: 20141126
  4. SOLU-MEDROL [Concomitant]
     Active Substance: METHYLPREDNISOLONE SODIUM SUCCINATE
     Indication: EWING^S SARCOMA
     Route: 065
     Dates: start: 20141124, end: 20141126
  5. VOGALENE [Concomitant]
     Active Substance: METOPIMAZINE
     Indication: EWING^S SARCOMA
     Route: 065
     Dates: start: 20141124, end: 20141126
  6. UROMITEXAN [Concomitant]
     Active Substance: MESNA
     Indication: EWING^S SARCOMA
     Route: 065
     Dates: start: 20141124, end: 20141126
  7. VINCRISTINE [Suspect]
     Active Substance: VINCRISTINE
     Indication: EWING^S SARCOMA
     Route: 042
     Dates: start: 20141124, end: 20141124
  8. ZOPHREN [Concomitant]
     Active Substance: ONDANSETRON
     Indication: EWING^S SARCOMA
     Route: 065
     Dates: start: 20141124, end: 20141126
  9. ETOPOPHOS [Suspect]
     Active Substance: ETOPOSIDE PHOSPHATE
     Indication: EWING^S SARCOMA
     Route: 042
     Dates: start: 20141124, end: 20141126

REACTIONS (3)
  - Febrile bone marrow aplasia [Recovered/Resolved]
  - Adverse reaction [Recovered/Resolved]
  - Product use issue [Unknown]

NARRATIVE: CASE EVENT DATE: 20141124
